FAERS Safety Report 21382802 (Version 1)
Quarter: 2022Q3

REPORT INFORMATION
  Report Type: Spontaneous
  Country: US (occurrence: US)
  Receive Date: 20220927
  Receipt Date: 20220927
  Transmission Date: 20221027
  Serious: No
  Sender: FDA-Public Use
  Company Number: US-ELI_LILLY_AND_COMPANY-US202208015267

PATIENT
  Age: 48 Year
  Sex: Female

DRUGS (2)
  1. MOUNJARO [Suspect]
     Active Substance: TIRZEPATIDE
     Indication: Weight decreased
     Dosage: 2.5 MG, WEEKLY (1/W)
     Route: 058
     Dates: start: 202208
  2. MOUNJARO [Suspect]
     Active Substance: TIRZEPATIDE
     Dosage: 2 DOSAGE FORM, WEEKLY (1/W)
     Route: 058
     Dates: start: 20220822, end: 20220822

REACTIONS (3)
  - Extra dose administered [Recovered/Resolved]
  - Off label use [Unknown]
  - Nausea [Recovered/Resolved]

NARRATIVE: CASE EVENT DATE: 20220801
